FAERS Safety Report 23971485 (Version 1)
Quarter: 2024Q2

REPORT INFORMATION
  Report Type: Spontaneous
  Country: SE (occurrence: SE)
  Receive Date: 20240613
  Receipt Date: 20240613
  Transmission Date: 20240715
  Serious: Yes (Other)
  Sender: FDA-Public Use
  Company Number: None

PATIENT
  Age: 31 Year
  Sex: Female
  Weight: 74 kg

DRUGS (4)
  1. MONTELUKAST [Suspect]
     Active Substance: MONTELUKAST SODIUM
     Indication: Asthma
     Dosage: 1 TABLET 1 TIME/DAY
     Dates: start: 20230927, end: 20231221
  2. PROPIOMAZINE HYDROCHLORIDE [Concomitant]
     Active Substance: PROPIOMAZINE HYDROCHLORIDE
     Dosage: 1 TABLET 1 TIME/DAY
  3. BUDESONIDE\FORMOTEROL FUMARATE [Concomitant]
     Active Substance: BUDESONIDE\FORMOTEROL FUMARATE
     Dosage: 1-2 DOSES 1-2 TIMES/DAY
     Dates: start: 20230927
  4. Progynon [Concomitant]
     Dosage: 1 TABLET 1 TIME/DAY

REACTIONS (3)
  - Dyspnoea [Recovering/Resolving]
  - Tic [Not Recovered/Not Resolved]
  - Seizure [Recovered/Resolved]

NARRATIVE: CASE EVENT DATE: 20231101
